FAERS Safety Report 20716181 (Version 1)
Quarter: 2022Q2

REPORT INFORMATION
  Report Type: Spontaneous
  Country: US (occurrence: US)
  Receive Date: 20220416
  Receipt Date: 20220416
  Transmission Date: 20220721
  Serious: No
  Sender: FDA-Public Use
  Company Number: US-ENDO PHARMACEUTICALS INC-2021-002174

PATIENT
  Sex: Male

DRUGS (18)
  1. AVEED [Suspect]
     Active Substance: TESTOSTERONE UNDECANOATE
     Indication: Testicular failure
     Dosage: UNK UNKNOWN, UNKNOWN; 750 MG/3 ML; EVERY 10 WEEKS
     Route: 030
     Dates: start: 20180220
  2. AVEED [Suspect]
     Active Substance: TESTOSTERONE UNDECANOATE
     Dosage: UNK UNKNOWN, UNKNOWN; 750 MG/3 ML; EVERY 10 WEEKS
     Route: 030
     Dates: start: 20180319
  3. AVEED [Suspect]
     Active Substance: TESTOSTERONE UNDECANOATE
     Dosage: UNK UNKNOWN, UNKNOWN; 750 MG/3 ML; EVERY 10 WEEKS
     Route: 030
     Dates: start: 20180529
  4. AVEED [Suspect]
     Active Substance: TESTOSTERONE UNDECANOATE
     Dosage: UNK UNKNOWN, UNKNOWN; 750 MG/3 ML; EVERY 10 WEEKS
     Route: 030
     Dates: start: 20180813
  5. AVEED [Suspect]
     Active Substance: TESTOSTERONE UNDECANOATE
     Dosage: UNK UNKNOWN, UNKNOWN; 750 MG/3 ML; EVERY 10 WEEKS
     Route: 030
     Dates: start: 20181022
  6. AVEED [Suspect]
     Active Substance: TESTOSTERONE UNDECANOATE
     Dosage: UNK UNKNOWN, UNKNOWN; 750 MG/3 ML; EVERY 10 WEEKS
     Route: 030
     Dates: start: 20181224
  7. AVEED [Suspect]
     Active Substance: TESTOSTERONE UNDECANOATE
     Dosage: UNK UNKNOWN, UNKNOWN; 750 MG/3 ML; EVERY 10 WEEKS
     Route: 030
     Dates: start: 20190304
  8. AVEED [Suspect]
     Active Substance: TESTOSTERONE UNDECANOATE
     Dosage: UNK UNKNOWN, UNKNOWN; 750 MG/3 ML; EVERY 10 WEEKS
     Route: 030
     Dates: start: 20190513
  9. AVEED [Suspect]
     Active Substance: TESTOSTERONE UNDECANOATE
     Dosage: UNK UNKNOWN, UNKNOWN; 750 MG/3 ML; EVERY 10 WEEKS
     Route: 030
     Dates: start: 20190802
  10. AVEED [Suspect]
     Active Substance: TESTOSTERONE UNDECANOATE
     Dosage: UNK UNKNOWN, UNKNOWN; 750 MG/3 ML; EVERY 10 WEEKS
     Route: 030
     Dates: start: 20191007
  11. AVEED [Suspect]
     Active Substance: TESTOSTERONE UNDECANOATE
     Dosage: UNK UNKNOWN, UNKNOWN; 750 MG/3 ML; EVERY 10 WEEKS
     Route: 030
     Dates: start: 20191217
  12. AVEED [Suspect]
     Active Substance: TESTOSTERONE UNDECANOATE
     Dosage: UNK UNKNOWN, UNKNOWN; 750 MG/3 ML; EVERY 10 WEEKS
     Route: 030
     Dates: start: 20200228
  13. AVEED [Suspect]
     Active Substance: TESTOSTERONE UNDECANOATE
     Dosage: UNK UNKNOWN, UNKNOWN; 750 MG/3 ML; EVERY 10 WEEKS
     Route: 030
     Dates: start: 20200713
  14. AVEED [Suspect]
     Active Substance: TESTOSTERONE UNDECANOATE
     Dosage: UNK UNKNOWN, UNKNOWN; 750 MG/3 ML; EVERY 10 WEEKS
     Route: 030
     Dates: start: 20200909
  15. AVEED [Suspect]
     Active Substance: TESTOSTERONE UNDECANOATE
     Dosage: UNK UNKNOWN, UNKNOWN; 750 MG/3 ML; EVERY 10 WEEKS
     Route: 030
     Dates: start: 20200925
  16. AVEED [Suspect]
     Active Substance: TESTOSTERONE UNDECANOATE
     Dosage: UNK UNKNOWN, UNKNOWN; 750 MG/3 ML; EVERY 10 WEEKS
     Route: 030
     Dates: start: 20201204
  17. AVEED [Suspect]
     Active Substance: TESTOSTERONE UNDECANOATE
     Dosage: UNK UNKNOWN, UNKNOWN; 750 MG/3 ML; EVERY 10 WEEKS
     Route: 030
     Dates: start: 20210216
  18. AVEED [Suspect]
     Active Substance: TESTOSTERONE UNDECANOATE
     Dosage: UNK UNKNOWN, UNKNOWN; 750 MG/3 ML; EVERY 10 WEEKS
     Route: 030
     Dates: start: 20210406

REACTIONS (2)
  - Drug ineffective [Unknown]
  - Inappropriate schedule of product administration [Recovered/Resolved]

NARRATIVE: CASE EVENT DATE: 20210101
